FAERS Safety Report 9399906 (Version 1)
Quarter: 2013Q3

REPORT INFORMATION
  Report Type: Report from Study
  Country: CA (occurrence: CA)
  Receive Date: 20130715
  Receipt Date: 20130715
  Transmission Date: 20140515
  Serious: Yes (Hospitalization)
  Sender: FDA-Public Use
  Company Number: CA-JNJFOC-20130705857

PATIENT
  Sex: Male
  Weight: 95.26 kg

DRUGS (1)
  1. REMICADE [Suspect]
     Indication: CROHN^S DISEASE
     Dosage: 450 MG ONCE EVERY 4-6 WEEKS??WAS ON INFLIXIMAB FOR 2-3 YERS PRIOR TO THE DATE OF THIS REPORT
     Route: 042

REACTIONS (2)
  - Rectal abscess [Unknown]
  - Fistula [Unknown]
